FAERS Safety Report 8176783-4 (Version None)
Quarter: 2012Q1

REPORT INFORMATION
  Report Type: 
  Country: None (occurrence: None)
  Receive Date: 20120301
  Receipt Date: 20120202
  Transmission Date: 20120608
  Serious: Yes (Other)
  Sender: FDA-Public Use
  Company Number: CA-JNJFOC-20120104131

PATIENT
  Sex: Female
  Weight: 80 kg

DRUGS (14)
  1. REMICADE [Suspect]
     Indication: PYODERMA GANGRENOSUM
     Route: 042
     Dates: start: 20111228
  2. WELLBUTRIN XL [Concomitant]
     Dosage: L A 24TH   IN THE MORNING
     Dates: start: 20110715
  3. QUETIAPINE [Concomitant]
     Route: 048
     Dates: start: 20110715
  4. NICOTINE / NICORETTE INVISIPATCH [Concomitant]
     Dosage: 15 MG/16 H  APPLY SKIN PATCH AND REPLACED EVERY 24 HOURS. ALTERNATE APPLICATION STIES.
     Route: 062
     Dates: start: 20111125
  5. REMICADE [Suspect]
     Dosage: APR/MAY-2011
     Route: 042
     Dates: start: 20110101, end: 20111228
  6. NICORETTE CLASSIC [Concomitant]
     Dosage: CHEW ONE PIECE OF GUM EACH TIME YOU FEEL AN UNCONTROLLABLE URGE TO SMOKE. MAXIMUM 20 GUMS PER DAY.
     Dates: start: 20111125
  7. PAROXETINE [Concomitant]
     Dosage: TEVA-PAROXETINE  IN THE MORNING
     Dates: start: 20110715
  8. PMS-CLONAZEPAM [Concomitant]
     Dosage: AT BEDTIME
     Dates: start: 20110715
  9. ANTI-DEPRESSANT [Concomitant]
     Route: 065
  10. REMICADE [Suspect]
     Route: 042
     Dates: start: 20110222
  11. REMICADE [Suspect]
     Indication: SKIN DISORDER
     Route: 042
     Dates: start: 20111228
  12. REMICADE [Suspect]
     Route: 042
     Dates: start: 20110222
  13. QUETIAPINE [Concomitant]
     Dosage: RATIO-QUETIAPINE   AT BEDTIME
     Route: 048
     Dates: start: 20110715
  14. REMICADE [Suspect]
     Dosage: APR/MAY-2011
     Route: 042
     Dates: start: 20110101, end: 20111228

REACTIONS (1)
  - DEAFNESS [None]
